FAERS Safety Report 7794883-5 (Version None)
Quarter: 2011Q4

REPORT INFORMATION
  Report Type: 
  Country: None (occurrence: None)
  Receive Date: 20111004
  Receipt Date: 20110921
  Transmission Date: 20120403
  Serious: Yes (Hospitalization)
  Sender: FDA-Public Use
  Company Number: PHHY2011GR84656

PATIENT
  Age: 78 Year
  Sex: Male

DRUGS (6)
  1. ONBREZ [Suspect]
     Dosage: 1 DF, QD
  2. LORAZEPAM [Concomitant]
  3. SPIRIVA [Concomitant]
  4. FLUOXETINE [Concomitant]
  5. PULMICORT [Concomitant]
     Dosage: 0.5 UKN, UNK
  6. MESALAMINE [Concomitant]

REACTIONS (5)
  - CHEST PAIN [None]
  - ARRHYTHMIA [None]
  - FATIGUE [None]
  - BLOOD PRESSURE DECREASED [None]
  - DYSPNOEA [None]
